FAERS Safety Report 4984485-8 (Version None)
Quarter: 2006Q2

REPORT INFORMATION
  Report Type: 
  Country: None (occurrence: None)
  Receive Date: 20060427
  Receipt Date: 20060418
  Transmission Date: 20061013
  Serious: Yes (Death)
  Sender: FDA-Public Use
  Company Number: SE-GLAXOSMITHKLINE-B0421482A

PATIENT

DRUGS (3)
  1. RETROVIR [Suspect]
     Indication: ANTIVIRAL PROPHYLAXIS
     Route: 065
     Dates: start: 20051123, end: 20051211
  2. RETROVIR [Suspect]
     Route: 042
     Dates: start: 20051211, end: 20051211
  3. TEOFYLLIN [Concomitant]
     Route: 065

REACTIONS (3)
  - MULTI-ORGAN FAILURE [None]
  - NECROTISING COLITIS [None]
  - STAPHYLOCOCCAL SEPSIS [None]
